FAERS Safety Report 11906130 (Version 1)
Quarter: 2016Q1

REPORT INFORMATION
  Report Type: Spontaneous
  Country: US (occurrence: US)
  Receive Date: 20160111
  Receipt Date: 20160111
  Transmission Date: 20160526
  Serious: Yes (Other)
  Sender: FDA-Public Use
  Company Number: US-ASTRAZENECA-2016SE01571

PATIENT
  Sex: Female
  Weight: 67.1 kg

DRUGS (18)
  1. IBRANCE [Suspect]
     Active Substance: PALBOCICLIB
     Route: 048
  2. MOUTHWASH [Concomitant]
  3. IBRANCE [Suspect]
     Active Substance: PALBOCICLIB
     Route: 048
  4. MULTIVITAMIN [Concomitant]
     Active Substance: VITAMINS
     Route: 048
  5. FASLODEX [Suspect]
     Active Substance: FULVESTRANT
     Indication: BREAST CANCER FEMALE
     Route: 030
  6. METOPROLOL SUCCINATE. [Suspect]
     Active Substance: METOPROLOL SUCCINATE
     Route: 048
  7. CALCIUM CARBONATE. [Concomitant]
     Active Substance: CALCIUM CARBONATE
     Route: 048
  8. ADVIL [Concomitant]
     Active Substance: IBUPROFEN
     Route: 048
  9. EXEMESTANE. [Concomitant]
     Active Substance: EXEMESTANE
     Dates: start: 20151202
  10. EXEMESTANE. [Concomitant]
     Active Substance: EXEMESTANE
     Dates: start: 20150819
  11. VITAMIN C [Concomitant]
     Active Substance: ASCORBIC ACID
     Route: 048
  12. MAGNESIUM [Concomitant]
     Active Substance: MAGNESIUM
     Route: 048
  13. CYCLOBENZAPRINE [Concomitant]
     Active Substance: CYCLOBENZAPRINE
     Route: 048
     Dates: start: 20150803
  14. GARLIC. [Concomitant]
     Active Substance: GARLIC
     Route: 048
  15. EXEMESTANE. [Concomitant]
     Active Substance: EXEMESTANE
     Dates: start: 20151022
  16. ARIMIDEX [Suspect]
     Active Substance: ANASTROZOLE
     Indication: BREAST CANCER FEMALE
     Route: 048
  17. CRANBERRY. [Concomitant]
     Active Substance: CRANBERRY
     Route: 048
  18. EXEMESTANE. [Concomitant]
     Active Substance: EXEMESTANE
     Dates: start: 20151022

REACTIONS (5)
  - Fatigue [Not Recovered/Not Resolved]
  - Back pain [Not Recovered/Not Resolved]
  - Disease progression [Unknown]
  - Pain in extremity [Not Recovered/Not Resolved]
  - Arthralgia [Not Recovered/Not Resolved]
